FAERS Safety Report 7403426-7 (Version None)
Quarter: 2011Q2

REPORT INFORMATION
  Report Type: 
  Country: None (occurrence: None)
  Receive Date: 20110408
  Receipt Date: 20110404
  Transmission Date: 20111010
  Serious: Yes (Other)
  Sender: FDA-Public Use
  Company Number: A0914674A

PATIENT
  Age: 37 Year
  Sex: Female

DRUGS (4)
  1. ADVAIR HFA [Suspect]
     Indication: ASTHMA
     Dosage: 1PUFF TWICE PER DAY
     Route: 055
     Dates: start: 20090801
  2. ZYRTEC [Concomitant]
  3. PREVACID [Concomitant]
  4. EFFEXOR [Concomitant]

REACTIONS (5)
  - NASOPHARYNGITIS [None]
  - DRUG EFFECT DECREASED [None]
  - ASTHMA [None]
  - PRODUCT QUALITY ISSUE [None]
  - WHEEZING [None]
